FAERS Safety Report 5658922-X (Version None)
Quarter: 2008Q1

REPORT INFORMATION
  Report Type: 
  Country: None (occurrence: None)
  Receive Date: 20080310
  Receipt Date: 20070629
  Transmission Date: 20080703
  Serious: No
  Sender: FDA-Public Use
  Company Number: US-BAYER-200711376BCC

PATIENT
  Age: 36 Year
  Sex: Male
  Weight: 113 kg

DRUGS (3)
  1. ALEVE [Suspect]
     Indication: DRUG USE FOR UNKNOWN INDICATION
     Route: 048
  2. ALEVE [Suspect]
     Indication: ARTHRALGIA
     Route: 048
     Dates: start: 20070424
  3. ALEVE [Suspect]
     Route: 048
     Dates: start: 20070428

REACTIONS (5)
  - HYPOKINESIA [None]
  - JOINT STIFFNESS [None]
  - JOINT SWELLING [None]
  - STOMACH DISCOMFORT [None]
  - TENDON INJURY [None]
